FAERS Safety Report 4473479-7 (Version None)
Quarter: 2004Q3

REPORT INFORMATION
  Report Type: 
  Country: None (occurrence: None)
  Receive Date: 20040909
  Receipt Date: 20040602
  Transmission Date: 20050211
  Serious: Yes (Life-Threatening, Hospitalization)
  Sender: FDA-Public Use
  Company Number: A03200401778

PATIENT
  Age: 59 Year
  Sex: Male
  Weight: 91.173 kg

DRUGS (5)
  1. ELOXATIN [Suspect]
     Indication: COLON CANCER METASTATIC
     Dosage: 170 MG OTHER - INTRAVENOUS NOS
     Route: 042
     Dates: start: 20040426, end: 20040624
  2. LEUCOVORIN CALCIUM [Suspect]
     Indication: COLON CANCER METASTATIC
     Dosage: 400 MG OTHER - INTRAVENOUS NOS
     Route: 042
  3. ONDASETRON HYDROCHLORIDE [Concomitant]
  4. DEXAMETHASONE [Concomitant]
  5. DIPHENHYDRAMINE HCL [Concomitant]

REACTIONS (5)
  - ANAPHYLACTIC SHOCK [None]
  - CARDIO-RESPIRATORY ARREST [None]
  - HYPERHIDROSIS [None]
  - PALLOR [None]
  - SYNCOPE [None]
